FAERS Safety Report 22396874 (Version 1)
Quarter: 2023Q2

REPORT INFORMATION
  Report Type: Report from Study
  Country: EG (occurrence: EG)
  Receive Date: 20230601
  Receipt Date: 20230601
  Transmission Date: 20230722
  Serious: Yes (Other)
  Sender: FDA-Public Use
  Company Number: EG-002147023-NVSC2023EG121498

PATIENT
  Age: 34 Year
  Sex: Female

DRUGS (7)
  1. AIMOVIG [Suspect]
     Active Substance: ERENUMAB-AOOE
     Indication: Migraine
     Dosage: 70 MILLIGRAM, QMO
     Route: 058
     Dates: start: 20211120, end: 202209
  2. VALPROATE SODIUM [Concomitant]
     Active Substance: VALPROATE SODIUM
     Indication: Migraine prophylaxis
     Dosage: 2 DOSAGE FORM, QD
     Route: 048
     Dates: end: 2022
  3. TOPIRAMATE [Concomitant]
     Active Substance: TOPIRAMATE
     Indication: Migraine prophylaxis
     Dosage: 3 DOSAGE FORM, BID (ONE TABLET AND HALF AT MORNING AND ONE TABLET AND HALF AT NIGHT)
     Route: 048
     Dates: start: 202208
  4. PAROXETINE HYDROCHLORIDE [Concomitant]
     Active Substance: PAROXETINE HYDROCHLORIDE
     Indication: Migraine prophylaxis
     Dosage: 1 DOSAGE FORM, QD (STRENGTH: 12.5 MG)
     Route: 048
     Dates: start: 202208
  5. PAROXETINE HYDROCHLORIDE [Concomitant]
     Active Substance: PAROXETINE HYDROCHLORIDE
     Dosage: 1 DOSAGE FORM, QD (STRENGTH: 25 MG)
     Route: 048
  6. Triactin [Concomitant]
     Indication: Increased appetite
     Dosage: 1 DOSAGE FORM, BID
     Route: 048
     Dates: start: 202208
  7. Triactin [Concomitant]
     Dosage: 2 DOSAGE FORM, BID
     Route: 048

REACTIONS (14)
  - Neuropathy peripheral [Not Recovered/Not Resolved]
  - Heart rate irregular [Not Recovered/Not Resolved]
  - Hypoacusis [Not Recovered/Not Resolved]
  - Sensory loss [Not Recovered/Not Resolved]
  - Tremor [Not Recovered/Not Resolved]
  - Hypoaesthesia [Not Recovered/Not Resolved]
  - Cardiac disorder [Not Recovered/Not Resolved]
  - Vision blurred [Not Recovered/Not Resolved]
  - Hypotension [Not Recovered/Not Resolved]
  - Dizziness [Not Recovered/Not Resolved]
  - Suicidal ideation [Not Recovered/Not Resolved]
  - Migraine [Not Recovered/Not Resolved]
  - Drug ineffective [Unknown]
  - Accidental exposure to product [Unknown]

NARRATIVE: CASE EVENT DATE: 20211120
